FAERS Safety Report 8533590-8 (Version None)
Quarter: 2012Q3

REPORT INFORMATION
  Report Type: 
  Country: None (occurrence: None)
  Receive Date: 20120717
  Receipt Date: 20120717
  Transmission Date: 20120928
  Serious: Yes (Other)
  Sender: FDA-Public Use
  Company Number: None

PATIENT
  Age: 48 Year
  Sex: Female
  Weight: 50.8029 kg

DRUGS (2)
  1. GADAVIST [Suspect]
     Indication: DIAGNOSTIC PROCEDURE
     Dosage: .05 ONCE OTHER
     Route: 050
     Dates: start: 20120531, end: 20120531
  2. GADAVIST [Suspect]
     Indication: ARTHROPATHY
     Dosage: .05 ONCE OTHER
     Route: 050
     Dates: start: 20120531, end: 20120531

REACTIONS (11)
  - NAUSEA [None]
  - RENAL PAIN [None]
  - DYSGEUSIA [None]
  - HEADACHE [None]
  - DRY MOUTH [None]
  - ASTHENIA [None]
  - MALAISE [None]
  - INCORRECT ROUTE OF DRUG ADMINISTRATION [None]
  - DEHYDRATION [None]
  - CHEST PAIN [None]
  - MUSCULOSKELETAL CHEST PAIN [None]
